FAERS Safety Report 5842900-1 (Version None)
Quarter: 2008Q3

REPORT INFORMATION
  Report Type: 
  Country: None (occurrence: None)
  Receive Date: 20080811
  Receipt Date: 20080804
  Transmission Date: 20090109
  Serious: Yes (Hospitalization)
  Sender: FDA-Public Use
  Company Number: GXBR2008US01597

PATIENT
  Age: 81 Year
  Sex: Male
  Weight: 81.6 kg

DRUGS (4)
  1. BROMERGON         (BROMOCRIPTINE) TABLET [Suspect]
     Indication: PARKINSON'S DISEASE
     Dosage: 2.5 MG, ONCE/SINGLE, ORAL
     Route: 048
     Dates: start: 20080522, end: 20080522
  2. PROPRANOLOL [Concomitant]
  3. SANCTURA [Concomitant]
  4. ASPIRIN [Concomitant]

REACTIONS (3)
  - CEREBROVASCULAR ACCIDENT [None]
  - CONVULSION [None]
  - LOSS OF CONSCIOUSNESS [None]
